FAERS Safety Report 7281355-X (Version None)
Quarter: 2011Q1

REPORT INFORMATION
  Report Type: 
  Country: None (occurrence: None)
  Receive Date: 20110203
  Receipt Date: 20110203
  Transmission Date: 20110831
  Serious: Yes (Hospitalization, Disabling, Other)
  Sender: FDA-Public Use
  Company Number: None

PATIENT
  Age: 64 Year
  Sex: Male
  Weight: 104.3273 kg

DRUGS (1)
  1. LIPITOR [Suspect]
     Indication: BLOOD CHOLESTEROL INCREASED
     Dosage: 10 MG ONCE DAILY PO
     Route: 048
     Dates: start: 20000112, end: 20101021

REACTIONS (6)
  - SINUSITIS [None]
  - SYNCOPE [None]
  - LIGAMENT DISORDER [None]
  - TENDON DISORDER [None]
  - DENTAL OPERATION [None]
  - NEUROPATHY PERIPHERAL [None]
